FAERS Safety Report 8945968 (Version 1)
Quarter: 2012Q4

REPORT INFORMATION
  Report Type: 
  Country: GB (occurrence: GB)
  Receive Date: 20121205
  Receipt Date: 20121205
  Transmission Date: 20130627
  Serious: Yes (Other)
  Sender: FDA-Public Use
  Company Number: GB-AMGEN-GBRCT2012077916

PATIENT
  Age: 48 Year
  Sex: Female

DRUGS (3)
  1. PEGFILGRASTIM [Suspect]
     Indication: BREAST CANCER
     Dosage: UNK
     Route: 042
     Dates: start: 20081223
  2. CAPECITABINE [Concomitant]
     Indication: BREAST CANCER
     Dosage: 1250 mg/m2, UNK
     Route: 048
     Dates: start: 20090218
  3. EPIRUBICIN [Concomitant]
     Indication: BREAST CANCER
     Dosage: UNK
     Route: 042
     Dates: start: 20081223

REACTIONS (1)
  - Chest pain [Recovered/Resolved]
